FAERS Safety Report 6794545-7 (Version None)
Quarter: 2010Q2

REPORT INFORMATION
  Report Type: 
  Country: None (occurrence: None)
  Receive Date: 20100625
  Receipt Date: 20100615
  Transmission Date: 20101027
  Serious: Yes (Other)
  Sender: FDA-Public Use
  Company Number: DE-PFIZER INC-2010065828

PATIENT
  Age: 73 Year
  Sex: Male

DRUGS (2)
  1. LYRICA [Suspect]
     Indication: NEURITIS
     Dosage: 150 MG DAILY
     Route: 048
     Dates: start: 20100515, end: 20100501
  2. LYRICA [Suspect]
     Dosage: 450 MG DAILY
     Route: 048
     Dates: start: 20100501

REACTIONS (2)
  - PHLEBITIS [None]
  - VISUAL IMPAIRMENT [None]
